FAERS Safety Report 9300450 (Version 1)
Quarter: 2013Q1

REPORT INFORMATION
  Report Type: Spontaneous
  Country: US (occurrence: None)
  Receive Date: 20130107
  Receipt Date: 20130107
  Transmission Date: 20140127
  Serious: Yes (Hospitalization)
  Sender: FDA-Public Use
  Company Number: DSA_55704_2012

PATIENT
  Age: 70 Year
  Sex: Female
  Weight: 67.7 kg

DRUGS (3)
  1. CARDIZEM [Suspect]
     Indication: PRODUCT USED FOR UNKNOWN INDICATION
     Route: 048
  2. REMODULIN [Suspect]
     Indication: COR PULMONALE CHRONIC
     Dosage: (29 NG/KG/MIN)
     Route: 042
     Dates: start: 20110224
  3. COUMADIN /000148028/ (UNKNOWN) [Concomitant]

REACTIONS (1)
  - Hypersensitivity [None]
